FAERS Safety Report 8430124-3 (Version None)
Quarter: 2012Q2

REPORT INFORMATION
  Report Type: 
  Country: None (occurrence: None)
  Receive Date: 20120612
  Receipt Date: 20120601
  Transmission Date: 20120825
  Serious: Yes (Hospitalization, Other)
  Sender: FDA-Public Use
  Company Number: US-MERCK-1202USA00049

PATIENT
  Age: 58 Year
  Sex: Female
  Weight: 68 kg

DRUGS (5)
  1. FOSAMAX [Suspect]
     Route: 048
     Dates: start: 20060201, end: 20060831
  2. FOSAMAX PLUS D [Suspect]
     Indication: OSTEOPENIA
     Route: 048
     Dates: start: 20050101, end: 20100101
  3. SYNTHROID [Concomitant]
     Indication: THYROID DISORDER
     Route: 065
     Dates: start: 19950101
  4. ALENDRONATE SODIUM [Suspect]
     Indication: OSTEOPENIA
     Route: 048
     Dates: start: 20090305, end: 20090626
  5. FOSAMAX [Suspect]
     Route: 048
     Dates: start: 20070614, end: 20070904

REACTIONS (31)
  - TACHYCARDIA [None]
  - INFECTION [None]
  - ANAEMIA [None]
  - TRIGGER FINGER [None]
  - THYROID DISORDER [None]
  - FALL [None]
  - MAJOR DEPRESSION [None]
  - ALLERGIC SINUSITIS [None]
  - ATELECTASIS [None]
  - HYPOTHYROIDISM [None]
  - TOOTH DISORDER [None]
  - RHEUMATOID ARTHRITIS [None]
  - PSORIASIS [None]
  - BLOOD CHOLESTEROL INCREASED [None]
  - TENOSYNOVITIS STENOSANS [None]
  - HIP FRACTURE [None]
  - CONTUSION [None]
  - JOINT CONTRACTURE [None]
  - FEMORAL NECK FRACTURE [None]
  - PSYCHOTIC DISORDER [None]
  - DERMATITIS ALLERGIC [None]
  - SPINAL OSTEOARTHRITIS [None]
  - KYPHOSIS [None]
  - GASTROINTESTINAL DISORDER [None]
  - ADVERSE DRUG REACTION [None]
  - BREAST CALCIFICATIONS [None]
  - UTERINE DISORDER [None]
  - MYALGIA [None]
  - HYPERTENSION [None]
  - POLLAKIURIA [None]
  - BLOOD CREATINE PHOSPHOKINASE INCREASED [None]
